FAERS Safety Report 5376694-3 (Version None)
Quarter: 2007Q2

REPORT INFORMATION
  Report Type: 
  Country: None (occurrence: None)
  Receive Date: 20070629
  Receipt Date: 20070620
  Transmission Date: 20071010
  Serious: Yes (Hospitalization)
  Sender: FDA-Public Use
  Company Number: 2007SP012459

PATIENT
  Age: 54 Year
  Sex: Female

DRUGS (2)
  1. PEG-INTRON [Suspect]
     Indication: HEPATITIS C
     Dosage: SC
     Route: 058
     Dates: start: 20070422
  2. RIBAVIRIN [Suspect]
     Indication: HEPATITIS C
     Dosage: PO
     Route: 048
     Dates: start: 20070422

REACTIONS (9)
  - ABDOMINAL PAIN [None]
  - CYST [None]
  - DEHYDRATION [None]
  - DIARRHOEA [None]
  - MIGRAINE [None]
  - NAUSEA [None]
  - PRURITUS [None]
  - STAPHYLOCOCCAL INFECTION [None]
  - VOMITING [None]
